FAERS Safety Report 11397376 (Version 2)
Quarter: 2015Q3

REPORT INFORMATION
  Report Type: Report from Study
  Country: AU (occurrence: AU)
  Receive Date: 20150819
  Receipt Date: 20150825
  Transmission Date: 20151125
  Serious: Yes (Death, Hospitalization, Other)
  Sender: FDA-Public Use
  Company Number: AU-GILEAD-2015-0163717

PATIENT
  Age: 82 Year
  Sex: Male

DRUGS (1)
  1. SOFOSBUVIR [Suspect]
     Active Substance: SOFOSBUVIR
     Indication: HEPATITIS C
     Dosage: 400 MG, UNK
     Route: 048
     Dates: start: 20150317, end: 20150807

REACTIONS (2)
  - Hepatic failure [Fatal]
  - Acute kidney injury [Unknown]
